FAERS Safety Report 20543259 (Version 1)
Quarter: 2022Q1

REPORT INFORMATION
  Report Type: Spontaneous
  Country: US (occurrence: US)
  Receive Date: 20220302
  Receipt Date: 20220302
  Transmission Date: 20220423
  Serious: No
  Sender: FDA-Public Use
  Company Number: US-PFIZER INC-202200292350

PATIENT
  Age: 70 Year
  Sex: Female
  Weight: 69.76 kg

DRUGS (1)
  1. CYTOMEL [Suspect]
     Active Substance: LIOTHYRONINE SODIUM
     Dosage: UNK

REACTIONS (6)
  - Dyspnoea [Unknown]
  - Chest pain [Unknown]
  - Malaise [Unknown]
  - Weight increased [Unknown]
  - Alopecia [Unknown]
  - Oesophageal disorder [Unknown]
